FAERS Safety Report 8538383-3 (Version None)
Quarter: 2012Q3

REPORT INFORMATION
  Report Type: 
  Country: None (occurrence: None)
  Receive Date: 20120726
  Receipt Date: 20120720
  Transmission Date: 20120928
  Serious: No
  Sender: FDA-Public Use
  Company Number: US-PFIZER INC-2012176692

PATIENT
  Sex: Female

DRUGS (1)
  1. LYRICA [Suspect]
     Dosage: UNK
     Dates: start: 20060720

REACTIONS (4)
  - PAIN [None]
  - FIBROMYALGIA [None]
  - WHEELCHAIR USER [None]
  - RESTLESS LEGS SYNDROME [None]
